FAERS Safety Report 21022811 (Version 1)
Quarter: 2022Q2

REPORT INFORMATION
  Report Type: Spontaneous
  Country: PL (occurrence: PL)
  Receive Date: 20220629
  Receipt Date: 20220629
  Transmission Date: 20220721
  Serious: Yes (Life-Threatening, Other)
  Sender: FDA-Public Use
  Company Number: PL-PFIZER INC-PV202200006965

PATIENT
  Age: 35 Year
  Sex: Female

DRUGS (1)
  1. VORICONAZOLE [Suspect]
     Active Substance: VORICONAZOLE
     Indication: Mucocutaneous candidiasis
     Dosage: UNK

REACTIONS (2)
  - Systemic candida [Unknown]
  - Pancytopenia [Unknown]
